FAERS Safety Report 10615381 (Version 1)
Quarter: 2014Q4

REPORT INFORMATION
  Report Type: Spontaneous
  Country: US (occurrence: None)
  Receive Date: 20141125
  Receipt Date: 20141125
  Transmission Date: 20150529
  Serious: No
  Sender: FDA-Public Use
  Company Number: None

PATIENT
  Age: 64 Year
  Sex: Female
  Weight: 72.58 kg

DRUGS (1)
  1. VENLAFAXINE [Suspect]
     Active Substance: VENLAFAXINE HYDROCHLORIDE
     Indication: DEPRESSION
     Dosage: 1 TABLET ONCE DAILY TAKEN BY MOUTH
     Route: 048

REACTIONS (16)
  - Musculoskeletal pain [None]
  - Arthralgia [None]
  - Dizziness [None]
  - Tremor [None]
  - Pain in jaw [None]
  - Muscle spasms [None]
  - Myalgia [None]
  - Dyspnoea [None]
  - Withdrawal syndrome [None]
  - Dry mouth [None]
  - Paraesthesia oral [None]
  - Fatigue [None]
  - Neck pain [None]
  - Headache [None]
  - Paraesthesia [None]
  - Chest pain [None]

NARRATIVE: CASE EVENT DATE: 20141124
